FAERS Safety Report 7013685-0 (Version None)
Quarter: 2010Q3

REPORT INFORMATION
  Report Type: 
  Country: None (occurrence: None)
  Receive Date: 20100924
  Receipt Date: 20100913
  Transmission Date: 20110219
  Serious: Yes (Hospitalization, Other)
  Sender: FDA-Public Use
  Company Number: HU-TYCO HEALTHCARE/MALLINCKRODT-T201002002

PATIENT
  Age: 78 Year
  Sex: Male

DRUGS (7)
  1. TRAMADOL [Suspect]
     Indication: BONE PAIN
     Dosage: 25 MG DAILY, GRADUALLY INCREASING
  2. CLARITHROMYCIN [Suspect]
     Indication: PHARYNGEAL OEDEMA
     Dosage: 1000 MG, QD
  3. CLOPIDOGREL [Concomitant]
     Dosage: UNK
  4. IRBESARTAN + HYDROCHLOROTHIAZIDE [Concomitant]
     Dosage: UNK
  5. ISOSORBIDE MONONITRATE [Concomitant]
  6. RABEPRAZOLE SODIUM [Concomitant]
     Dosage: UNK
  7. ATORVASTATIN [Concomitant]
     Dosage: UNK

REACTIONS (2)
  - DRUG INTERACTION [None]
  - HALLUCINATIONS, MIXED [None]
